FAERS Safety Report 7627477-2 (Version None)
Quarter: 2011Q3

REPORT INFORMATION
  Report Type: 
  Country: None (occurrence: None)
  Receive Date: 20110721
  Receipt Date: 20110714
  Transmission Date: 20111222
  Serious: Yes (Hospitalization)
  Sender: FDA-Public Use
  Company Number: US-ELI_LILLY_AND_COMPANY-US201107003893

PATIENT
  Sex: Female
  Weight: 94.785 kg

DRUGS (5)
  1. SPIRONOLACTONE [Concomitant]
     Indication: HYPERTENSION
     Dosage: UNK
  2. BYSTOLIC [Concomitant]
     Indication: HYPERTENSION
     Route: 048
  3. BYETTA [Suspect]
     Indication: TYPE 2 DIABETES MELLITUS
     Dosage: 5 UG, UNK
     Route: 058
  4. BYETTA [Suspect]
     Dosage: 10 UG, BID
  5. GLIMEPIRIDE [Concomitant]
     Indication: TYPE 2 DIABETES MELLITUS
     Dosage: 2 MG, BID
     Route: 048

REACTIONS (9)
  - BLOOD GLUCOSE DECREASED [None]
  - ASTHENIA [None]
  - NAUSEA [None]
  - FEELING HOT [None]
  - DECREASED APPETITE [None]
  - DYSPNOEA [None]
  - MALAISE [None]
  - FATIGUE [None]
  - SWELLING FACE [None]
